FAERS Safety Report 16808552 (Version 2)
Quarter: 2020Q1

REPORT INFORMATION
  Report Type: Spontaneous
  Country: US (occurrence: US)
  Receive Date: 20190916
  Receipt Date: 20200326
  Transmission Date: 20200409
  Serious: Yes (Other)
  Sender: FDA-Public Use
  Company Number: US-GILEAD-2019-0428008

PATIENT
  Age: 49 Year
  Sex: Female

DRUGS (50)
  1. TRUVADA [Suspect]
     Active Substance: EMTRICITABINE\TENOFOVIR DISOPROXIL FUMARATE
     Dosage: UNK
     Route: 065
     Dates: start: 200811, end: 201012
  2. DRONABINOL. [Concomitant]
     Active Substance: DRONABINOL
  3. ESCITALOPRAM [Concomitant]
     Active Substance: ESCITALOPRAM OXALATE
  4. FLUOCINONIDE. [Concomitant]
     Active Substance: FLUOCINONIDE
  5. CEPHALEXIN [CEFALEXIN] [Concomitant]
     Active Substance: CEPHALEXIN
  6. KETOCONAZOLE. [Concomitant]
     Active Substance: KETOCONAZOLE
  7. ASPIRIN 81 [Concomitant]
     Active Substance: ASPIRIN
  8. DESCOVY [Concomitant]
     Active Substance: EMTRICITABINE\TENOFOVIR ALAFENAMIDE FUMARATE
  9. ERGOCALCIFEROL. [Concomitant]
     Active Substance: ERGOCALCIFEROL
  10. TRAMADOL. [Concomitant]
     Active Substance: TRAMADOL
  11. MONTELUKAST [Concomitant]
     Active Substance: MONTELUKAST SODIUM
  12. DARAPRIM [Concomitant]
     Active Substance: PYRIMETHAMINE
  13. COMBIVIR [Concomitant]
     Active Substance: LAMIVUDINE\ZIDOVUDINE
  14. BISACODYL. [Concomitant]
     Active Substance: BISACODYL
  15. HYDROCODONE [Concomitant]
     Active Substance: HYDROCODONE
  16. PREZISTA [Concomitant]
     Active Substance: DARUNAVIR ETHANOLATE
  17. DEXILANT [Concomitant]
     Active Substance: DEXLANSOPRAZOLE
  18. DAPSONE. [Concomitant]
     Active Substance: DAPSONE
  19. ACETAMINOPHEN. [Concomitant]
     Active Substance: ACETAMINOPHEN
  20. EPINEPHRINE. [Concomitant]
     Active Substance: EPINEPHRINE
  21. PROTONIX [Concomitant]
     Active Substance: PANTOPRAZOLE SODIUM
  22. PREDNISONE. [Concomitant]
     Active Substance: PREDNISONE
  23. AVELOX [Concomitant]
     Active Substance: MOXIFLOXACIN HYDROCHLORIDE
  24. TUSSIONEX [CHLORPHENAMINE;HYDROCODONE BITARTRATE] [Concomitant]
  25. VERAMYST [Concomitant]
     Active Substance: FLUTICASONE FUROATE
  26. ADVAIR HFA [Concomitant]
     Active Substance: FLUTICASONE PROPIONATE\SALMETEROL XINAFOATE
  27. NYSTATIN. [Concomitant]
     Active Substance: NYSTATIN
  28. DULERA [Concomitant]
     Active Substance: FORMOTEROL FUMARATE DIHYDRATE\MOMETASONE FUROATE
  29. METRONIDAZOLE. [Concomitant]
     Active Substance: METRONIDAZOLE
  30. TRUVADA [Suspect]
     Active Substance: EMTRICITABINE\TENOFOVIR DISOPROXIL FUMARATE
     Indication: HIV INFECTION
     Dosage: UNK
     Route: 048
     Dates: start: 201012, end: 201609
  31. ISENTRESS [Concomitant]
     Active Substance: RALTEGRAVIR POTASSIUM
  32. LIDOCAINE. [Concomitant]
     Active Substance: LIDOCAINE
  33. NORVIR [Concomitant]
     Active Substance: RITONAVIR
  34. CEFDINIR. [Concomitant]
     Active Substance: CEFDINIR
  35. LEUCOVORIN CALCIUM. [Concomitant]
     Active Substance: LEUCOVORIN CALCIUM
  36. CIPROFLOXACIN. [Concomitant]
     Active Substance: CIPROFLOXACIN
  37. ATRIPLA [Suspect]
     Active Substance: EFAVIRENZ\EMTRICITABINE\TENOFOVIR DISOPROXIL FUMARATE
     Indication: HIV INFECTION
     Dosage: UNK
     Route: 048
     Dates: start: 200707, end: 200810
  38. ALPRAZOLAM. [Concomitant]
     Active Substance: ALPRAZOLAM
  39. DOCUSATE SODIUM. [Concomitant]
     Active Substance: DOCUSATE SODIUM
  40. MELOXICAM. [Concomitant]
     Active Substance: MELOXICAM
  41. RITONAVIR. [Concomitant]
     Active Substance: RITONAVIR
  42. VENTOLIN [Concomitant]
     Active Substance: ALBUTEROL SULFATE
  43. NASONEX [Concomitant]
     Active Substance: MOMETASONE FUROATE
  44. FEXOFENADINE [Concomitant]
     Active Substance: FEXOFENADINE HYDROCHLORIDE
  45. MEPRON [Concomitant]
     Active Substance: ATOVAQUONE
  46. BENTYL [Concomitant]
     Active Substance: DICYCLOMINE HYDROCHLORIDE
  47. SPIRIVA [Concomitant]
     Active Substance: TIOTROPIUM BROMIDE MONOHYDRATE
  48. SYMBICORT [Concomitant]
     Active Substance: BUDESONIDE\FORMOTEROL FUMARATE DIHYDRATE
  49. XYZAL [Concomitant]
     Active Substance: LEVOCETIRIZINE DIHYDROCHLORIDE
  50. AZITHROMYCIN ANHYDROUS. [Concomitant]
     Active Substance: AZITHROMYCIN ANHYDROUS

REACTIONS (10)
  - Anxiety [Unknown]
  - Osteoarthritis [Not Recovered/Not Resolved]
  - Emotional distress [Unknown]
  - Pain [Unknown]
  - Bone density decreased [Unknown]
  - Arthritis [Not Recovered/Not Resolved]
  - Osteoporosis [Unknown]
  - Anhedonia [Unknown]
  - Osteoarthritis [Not Recovered/Not Resolved]
  - Economic problem [Unknown]

NARRATIVE: CASE EVENT DATE: 201801
